FAERS Safety Report 4542724-1 (Version None)
Quarter: 2005Q1

REPORT INFORMATION
  Report Type: 
  Country: None (occurrence: None)
  Receive Date: 20041223
  Receipt Date: 20040929
  Transmission Date: 20050727
  Serious: No
  Sender: FDA-Public Use
  Company Number: US-JNJFOC-20041000330

PATIENT
  Age: 25 Year
  Sex: Female
  Weight: 67.1324 kg

DRUGS (2)
  1. ORTHO EVRA [Suspect]
     Indication: CONTRACEPTION
     Dosage: 1 DOSE(S) 3 IN 4 WEEK, TRANSDERMAL
     Route: 062
     Dates: start: 20040905
  2. MULTIVITAMIN (MULTIVITAMINS) [Concomitant]

REACTIONS (5)
  - ABDOMINAL PAIN [None]
  - BREAST TENDERNESS [None]
  - HYPERTROPHY BREAST [None]
  - OLIGOMENORRHOEA [None]
  - VAGINAL DISCHARGE [None]
